FAERS Safety Report 25251643 (Version 1)
Quarter: 2025Q2

REPORT INFORMATION
  Report Type: Spontaneous
  Country: US (occurrence: US)
  Receive Date: 20250429
  Receipt Date: 20250429
  Transmission Date: 20250717
  Serious: No
  Sender: AZURITY PHARMACEUTICALS
  Company Number: US-AZURITY PHARMACEUTICALS, INC.-AZR202412-001330

PATIENT
  Sex: Male

DRUGS (8)
  1. HORIZANT [Suspect]
     Active Substance: GABAPENTIN ENACARBIL
     Indication: Restless legs syndrome
     Dates: start: 2024
  2. HORIZANT [Suspect]
     Active Substance: GABAPENTIN ENACARBIL
     Dates: start: 2024
  3. HORIZANT [Suspect]
     Active Substance: GABAPENTIN ENACARBIL
     Dates: start: 2024
  4. KEFLEX [Concomitant]
     Active Substance: CEPHALEXIN
     Indication: Product used for unknown indication
     Dosage: 500 MILLIGRAM, Q6H
     Route: 065
  5. LIPITOR [Concomitant]
     Active Substance: ATORVASTATIN CALCIUM
     Indication: Product used for unknown indication
     Route: 065
  6. METFORMIN HYDROCHLORIDE [Concomitant]
     Active Substance: METFORMIN HYDROCHLORIDE
     Indication: Product used for unknown indication
     Route: 065
  7. CHLORTHALIDONE [Concomitant]
     Active Substance: CHLORTHALIDONE
     Indication: Product used for unknown indication
     Route: 065
  8. Vitamin D3 125 IU [Concomitant]
     Indication: Product used for unknown indication
     Route: 065

REACTIONS (6)
  - Somnolence [Recovered/Resolved]
  - Adverse event [Recovered/Resolved]
  - Feeling abnormal [Recovered/Resolved]
  - Therapeutic product effect incomplete [Unknown]
  - Product prescribing error [Unknown]
  - Intentional product use issue [Unknown]

NARRATIVE: CASE EVENT DATE: 20240101
